FAERS Safety Report 16973596 (Version 4)
Quarter: 2022Q2

REPORT INFORMATION
  Report Type: Spontaneous
  Country: US (occurrence: US)
  Receive Date: 20191030
  Receipt Date: 20220414
  Transmission Date: 20220721
  Serious: No
  Sender: FDA-Public Use
  Company Number: US-PFIZER INC-2017543076

PATIENT
  Age: 63 Year
  Sex: Female
  Weight: 52.154 kg

DRUGS (2)
  1. XELJANZ [Suspect]
     Active Substance: TOFACITINIB CITRATE
     Indication: Rheumatoid arthritis
     Dosage: 5 MG, 3X/DAY (ONE IN THE MORNING, ONE MAYBE 3:30 TO 4 THEN ONE JUST BEFORE BED)
     Route: 048
     Dates: start: 201411
  2. XELJANZ [Suspect]
     Active Substance: TOFACITINIB CITRATE
     Dosage: 5 MG

REACTIONS (4)
  - Off label use [Unknown]
  - Goitre [Unknown]
  - Poor quality sleep [Unknown]
  - Sinus disorder [Not Recovered/Not Resolved]

NARRATIVE: CASE EVENT DATE: 20141101
